FAERS Safety Report 8408143-2 (Version None)
Quarter: 2012Q2

REPORT INFORMATION
  Report Type: 
  Country: None (occurrence: None)
  Receive Date: 20120323
  Receipt Date: 20110517
  Transmission Date: 20120825
  Serious: Yes (Other)
  Sender: FDA-Public Use
  Company Number: 163-21880-11042719

PATIENT
  Age: 67 Year
  Sex: Male
  Weight: 76.3 kg

DRUGS (3)
  1. BACTRIM DS [Concomitant]
  2. REVLIMID [Suspect]
     Indication: MULTIPLE MYELOMA
     Dosage: 25 MG, DAILY DAYS 1-14 Q 21 DAYS, PO 10 MG, DAILY DAYS 1-14 Q 21 DAYS, PO
     Route: 048
     Dates: start: 20100114
  3. REVLIMID [Suspect]
     Indication: MULTIPLE MYELOMA
     Dosage: 25 MG, DAILY DAYS 1-14 Q 21 DAYS, PO 10 MG, DAILY DAYS 1-14 Q 21 DAYS, PO
     Route: 048
     Dates: start: 20100929

REACTIONS (2)
  - FATIGUE [None]
  - ANAEMIA [None]
